FAERS Safety Report 25096028 (Version 3)
Quarter: 2025Q2

REPORT INFORMATION
  Report Type: Spontaneous
  Country: US (occurrence: US)
  Receive Date: 20250319
  Receipt Date: 20250612
  Transmission Date: 20250717
  Serious: No
  Sender: MERCK SHARP & DOHME LLC
  Company Number: US-009507513-2262766

PATIENT
  Sex: Female
  Weight: 78.471 kg

DRUGS (32)
  1. SOTATERCEPT [Suspect]
     Active Substance: SOTATERCEPT
     Indication: Product used for unknown indication
  2. SOTATERCEPT [Suspect]
     Active Substance: SOTATERCEPT
  3. SOTATERCEPT [Suspect]
     Active Substance: SOTATERCEPT
  4. SOTATERCEPT [Suspect]
     Active Substance: SOTATERCEPT
  5. TREPROSTINIL SODIUM [Suspect]
     Active Substance: TREPROSTINIL SODIUM
     Indication: Pulmonary arterial hypertension
     Route: 058
     Dates: start: 20240508
  6. TREPROSTINIL SODIUM [Suspect]
     Active Substance: TREPROSTINIL SODIUM
     Indication: Pulmonary arterial hypertension
     Route: 058
  7. LECITHIN [Concomitant]
     Active Substance: LECITHIN
  8. ALBUTEROL SULFATE [Concomitant]
     Active Substance: ALBUTEROL SULFATE
  9. POTASSIUM [Concomitant]
     Active Substance: POTASSIUM
  10. TRAMADOL HCL [Concomitant]
     Active Substance: TRAMADOL HYDROCHLORIDE
  11. CLONIDINE HYDROCHLORIDE [Concomitant]
     Active Substance: CLONIDINE HYDROCHLORIDE
  12. KETOPROFEN [Concomitant]
     Active Substance: KETOPROFEN
  13. OXYGEN [Concomitant]
     Active Substance: OXYGEN
  14. LIDOCAINE HYDROCHLORIDE [Concomitant]
     Active Substance: LIDOCAINE HYDROCHLORIDE
  15. ONDANSETRON HYDROCHLORIDE [Concomitant]
     Active Substance: ONDANSETRON HYDROCHLORIDE
  16. LUNESTA [Concomitant]
     Active Substance: ESZOPICLONE
  17. AMITRIPTYLINE HYDROCHLORIDE [Concomitant]
     Active Substance: AMITRIPTYLINE HYDROCHLORIDE
  18. POLOXAMER [Concomitant]
     Active Substance: POLOXAMER
  19. ESZOPICLONE [Concomitant]
     Active Substance: ESZOPICLONE
  20. TORSEMIDE [Concomitant]
     Active Substance: TORSEMIDE
  21. MOTRIN IB [Concomitant]
     Active Substance: IBUPROFEN
  22. MELOXICAM [Concomitant]
     Active Substance: MELOXICAM
  23. VALACYCLOVIR [Concomitant]
     Active Substance: VALACYCLOVIR HYDROCHLORIDE
  24. METHOCARBAMOL [Concomitant]
     Active Substance: METHOCARBAMOL
  25. TRAZODONE HCL [Concomitant]
     Active Substance: TRAZODONE HYDROCHLORIDE
  26. MACITENTAN\TADALAFIL [Concomitant]
     Active Substance: MACITENTAN\TADALAFIL
  27. ACETAMINOPHEN\HYDROCODONE [Concomitant]
     Active Substance: ACETAMINOPHEN\HYDROCODONE
  28. TYLENOL EXTRA STRENGTH [Concomitant]
     Active Substance: ACETAMINOPHEN
  29. SODIUM CHLORIDE [Concomitant]
     Active Substance: SODIUM CHLORIDE
  30. PREVALITE [Concomitant]
     Active Substance: CHOLESTYRAMINE
  31. KETAMINE HYDROCHLORIDE [Concomitant]
     Active Substance: KETAMINE HYDROCHLORIDE
  32. D 400 (Colecalciferol) [Concomitant]

REACTIONS (3)
  - Nausea [Unknown]
  - Diarrhoea [Unknown]
  - Headache [Unknown]
